FAERS Safety Report 8327096 (Version 4)
Quarter: 2013Q1

REPORT INFORMATION
  Report Type: Report from Study
  Country: GB (occurrence: GB)
  Receive Date: 20120109
  Receipt Date: 20130225
  Transmission Date: 20140127
  Serious: Yes (Death, Hospitalization, Other)
  Sender: FDA-Public Use
  Company Number: GB-ROCHE-1028075

PATIENT
  Age: 66 Year
  Sex: Male

DRUGS (5)
  1. RITUXIMAB [Suspect]
     Indication: RHEUMATOID ARTHRITIS
     Dosage: DATE OF LAST DOSE PRIOR TO SAE: 25/NOV/2010
     Route: 065
     Dates: start: 20101111
  2. LEFLUNOMIDE [Concomitant]
     Route: 065
     Dates: start: 200409
  3. ORAMORPH [Concomitant]
  4. ZOMORPH [Concomitant]
  5. DEXAMETHASON [Concomitant]

REACTIONS (2)
  - Bladder transitional cell carcinoma [Fatal]
  - Metastases to adrenals [Recovered/Resolved]
